FAERS Safety Report 5487840-5 (Version None)
Quarter: 2007Q4

REPORT INFORMATION
  Report Type: 
  Country: None (occurrence: None)
  Receive Date: 20071017
  Receipt Date: 20071008
  Transmission Date: 20080405
  Serious: Yes (Other)
  Sender: FDA-Public Use
  Company Number: US-JNJFOC-20071002179

PATIENT
  Sex: Male
  Weight: 85.19 kg

DRUGS (10)
  1. REMICADE [Suspect]
     Dosage: WEEK 2
     Route: 042
  2. REMICADE [Suspect]
     Dosage: WEEK 0
     Route: 042
  3. REMICADE [Suspect]
     Indication: CROHN'S DISEASE
     Dosage: 2 DOSES GIVEN IN 2001
     Route: 042
  4. METRONIDAZOLE [Concomitant]
  5. PENTASA [Concomitant]
  6. MAG OX [Concomitant]
  7. POTASSIUM CHLORIDE [Concomitant]
  8. NEXIUM [Concomitant]
  9. WELLBUTRIN [Concomitant]
  10. BENADRYL [Concomitant]
     Indication: PREMEDICATION

REACTIONS (8)
  - FLUSHING [None]
  - INFUSION RELATED REACTION [None]
  - MUSCULOSKELETAL PAIN [None]
  - OESOPHAGEAL DISORDER [None]
  - PAIN IN JAW [None]
  - PRURITUS [None]
  - RASH [None]
  - SWELLING [None]
